FAERS Safety Report 11544772 (Version 1)
Quarter: 2015Q3

REPORT INFORMATION
  Report Type: Spontaneous
  Country: FI (occurrence: FI)
  Receive Date: 20150924
  Receipt Date: 20150924
  Transmission Date: 20151125
  Serious: Yes (Death, Other)
  Sender: FDA-Public Use
  Company Number: FI-ROCHE-1636764

PATIENT
  Sex: Female

DRUGS (3)
  1. CAELYX [Suspect]
     Active Substance: DOXORUBICIN HYDROCHLORIDE
     Indication: GENITAL NEOPLASM MALIGNANT FEMALE
     Route: 065
  2. AVASTIN [Suspect]
     Active Substance: BEVACIZUMAB
     Indication: GENITAL NEOPLASM MALIGNANT FEMALE
     Route: 065
     Dates: start: 201411, end: 20141208
  3. CARBOPLATIN. [Suspect]
     Active Substance: CARBOPLATIN
     Indication: GENITAL NEOPLASM MALIGNANT FEMALE
     Route: 065

REACTIONS (2)
  - Lymphocele [Unknown]
  - Neutropenic sepsis [Fatal]

NARRATIVE: CASE EVENT DATE: 20141214
